FAERS Safety Report 9794677 (Version 6)
Quarter: 2014Q2

REPORT INFORMATION
  Report Type: Spontaneous
  Country: US (occurrence: US)
  Receive Date: 20140102
  Receipt Date: 20140513
  Transmission Date: 20141212
  Serious: Yes (Hospitalization, Other)
  Sender: FDA-Public Use
  Company Number: US-BAXTER-2013BAX051585

PATIENT
  Sex: Male

DRUGS (2)
  1. DIANEAL LOW CALCIUM [Suspect]
     Indication: PERITONEAL DIALYSIS
     Route: 033
  2. DIANEAL LOW CALCIUM [Suspect]
     Indication: RENAL FAILURE CHRONIC
     Route: 033
     Dates: start: 2013

REACTIONS (5)
  - Cardiac disorder [Recovering/Resolving]
  - Angiopathy [Recovering/Resolving]
  - Chest pain [Recovering/Resolving]
  - Peritoneal dialysis complication [Recovering/Resolving]
  - Abdominal pain upper [Recovering/Resolving]
